FAERS Safety Report 8134626-9 (Version None)
Quarter: 2012Q1

REPORT INFORMATION
  Report Type: 
  Country: None (occurrence: None)
  Receive Date: 20120214
  Receipt Date: 20120207
  Transmission Date: 20120608
  Serious: Yes (Other)
  Sender: FDA-Public Use
  Company Number: US-BRISTOL-MYERS SQUIBB COMPANY-16369647

PATIENT
  Sex: Female

DRUGS (5)
  1. IBUPROFEN [Suspect]
     Indication: PAIN
  2. OXYCODONE HCL [Suspect]
     Indication: PAIN
  3. ACTOS [Suspect]
     Indication: BLOOD GLUCOSE
  4. GLUCOPHAGE [Suspect]
     Indication: DIABETES MELLITUS
     Route: 048
  5. HYDROCODONE [Suspect]
     Indication: PAIN

REACTIONS (3)
  - KNEE OPERATION [None]
  - BLOOD GLUCOSE INCREASED [None]
  - NAUSEA [None]
